FAERS Safety Report 4721906-X (Version None)
Quarter: 2005Q3

REPORT INFORMATION
  Report Type: 
  Country: None (occurrence: None)
  Receive Date: 20050720
  Receipt Date: 20050708
  Transmission Date: 20060218
  Serious: Yes (Other)
  Sender: FDA-Public Use
  Company Number: CHNY2005DE01339

PATIENT
  Sex: Female

DRUGS (1)
  1. NICOTINE [Suspect]
     Indication: SMOKING CESSATION THERAPY
     Dosage: 20 MG, ONCE/SINGLE, TRANSDERMAL
     Route: 062

REACTIONS (6)
  - HYPOAESTHESIA [None]
  - NAUSEA [None]
  - PALPITATIONS [None]
  - PARESIS [None]
  - TONGUE BLACK HAIRY [None]
  - VOMITING [None]
